FAERS Safety Report 4748784-7 (Version None)
Quarter: 2005Q3

REPORT INFORMATION
  Report Type: 
  Country: None (occurrence: None)
  Receive Date: 20050812
  Receipt Date: 20050623
  Transmission Date: 20060218
  Serious: Yes (Other)
  Sender: FDA-Public Use
  Company Number: 408837

PATIENT
  Age: 49 Year
  Sex: Female

DRUGS (4)
  1. PEGASYS [Suspect]
     Indication: HEPATITIS C VIRUS
     Dosage: 180 MCG 1 PER WEEK OTHER
     Route: 050
     Dates: start: 20050414, end: 20050610
  2. COPEGUS [Suspect]
     Indication: HEPATITIS C VIRUS
     Dosage: 800 MG DAILY ORAL
     Route: 048
     Dates: start: 20050414, end: 20050610
  3. ZOLOFT [Concomitant]
  4. KLONOPIN [Concomitant]

REACTIONS (2)
  - INCREASED TENDENCY TO BRUISE [None]
  - PLATELET COUNT DECREASED [None]
